FAERS Safety Report 4570115-6 (Version None)
Quarter: 2005Q1

REPORT INFORMATION
  Report Type: 
  Country: None (occurrence: None)
  Receive Date: 20050131
  Receipt Date: 20050124
  Transmission Date: 20050727
  Serious: Yes (Life-Threatening)
  Sender: FDA-Public Use
  Company Number: 2004-12-0682

PATIENT
  Age: 52 Year
  Sex: Male

DRUGS (10)
  1. DIPROLENE [Suspect]
     Indication: DERMATITIS PSORIASIFORM
     Dosage: 0.05% QD TOP-DERM
     Dates: start: 20041208, end: 20041214
  2. DOVONEX [Concomitant]
  3. CORDRAN TOPICALS [Concomitant]
  4. SERTACONAZOLE NITRATE [Concomitant]
  5. ULTRAVATE [Concomitant]
  6. SOMA [Concomitant]
  7. NORCO (HYDROCODONE BITARTRATE) [Concomitant]
  8. RANITIDINE [Concomitant]
  9. PANCREASE [Concomitant]
  10. ALLEGRA-D (FEXOFENADINE/PSEUDOEPHEDRINE) [Concomitant]

REACTIONS (10)
  - DRUG TOXICITY [None]
  - ERYTHEMA [None]
  - FEELING ABNORMAL [None]
  - HYPERSENSITIVITY [None]
  - HYPOTENSION [None]
  - MENTAL DISORDER [None]
  - MOVEMENT DISORDER [None]
  - PHARMACEUTICAL PRODUCT COMPLAINT [None]
  - REACTION TO MEDICAL AGENT PRESERVATIVES [None]
  - SYNCOPE [None]
